FAERS Safety Report 21363302 (Version 1)
Quarter: 2022Q3

REPORT INFORMATION
  Report Type: Other
  Country: US (occurrence: None)
  Receive Date: 20220922
  Receipt Date: 20220922
  Transmission Date: 20221026
  Serious: Yes (Other)
  Sender: FDA-Public Use
  Company Number: US-ROCHE-3184146

PATIENT
  Age: 50 Year
  Sex: Female

DRUGS (10)
  1. OCREVUS [Suspect]
     Active Substance: OCRELIZUMAB
     Indication: Multiple sclerosis
     Route: 065
     Dates: start: 20190612
  2. ERGOCALCIFEROL [Concomitant]
     Active Substance: ERGOCALCIFEROL
  3. DALFAMPRIDINE [Concomitant]
     Active Substance: DALFAMPRIDINE
  4. AMANTADINE [Concomitant]
     Active Substance: AMANTADINE
  5. FENOFIBRATE [Concomitant]
     Active Substance: FENOFIBRATE
  6. APPLE CIDER VINEGAR [Concomitant]
     Active Substance: APPLE CIDER VINEGAR
  7. OMEGA-3 FATTY ACIDS [Concomitant]
     Active Substance: OMEGA-3 FATTY ACIDS
  8. VITAMIN B12 [Concomitant]
     Active Substance: CYANOCOBALAMIN
  9. AMLODIPINE [Concomitant]
     Active Substance: AMLODIPINE BESYLATE
  10. SODIUM CHLORIDE [Concomitant]
     Active Substance: SODIUM CHLORIDE

REACTIONS (1)
  - Herpes zoster [Unknown]

NARRATIVE: CASE EVENT DATE: 20210501
